FAERS Safety Report 17072168 (Version 1)
Quarter: 2019Q4

REPORT INFORMATION
  Report Type: Spontaneous
  Country: GB (occurrence: GB)
  Receive Date: 20191125
  Receipt Date: 20191125
  Transmission Date: 20200122
  Serious: Yes (Death)
  Sender: FDA-Public Use
  Company Number: GB-FRESENIUS KABI-FK201912973

PATIENT
  Age: 74 Year
  Sex: Female

DRUGS (5)
  1. IMMUNOGLOBULINS NOS [Concomitant]
     Active Substance: IMMUNE GLOBULIN NOS
     Indication: MYOSITIS
     Route: 042
     Dates: start: 2018, end: 2018
  2. PREDNISOLONE. [Suspect]
     Active Substance: PREDNISOLONE
     Indication: MYOSITIS
     Route: 048
     Dates: start: 2018, end: 2018
  3. PEMBROLIZUMAB. [Concomitant]
     Active Substance: PEMBROLIZUMAB
     Indication: LUNG ADENOCARCINOMA
     Dosage: SECOND CYCLE OF SECOND-LINE PEMROLIZUMAB
     Route: 065
     Dates: start: 2018, end: 2018
  4. METHYLPREDNISOLONE (MANUFACTURER UNKNOWN) [Suspect]
     Active Substance: METHYLPREDNISOLONE
     Indication: MYOSITIS
     Dosage: PULSE
     Route: 042
     Dates: start: 2018, end: 2018
  5. METHYLPREDNISOLONE (MANUFACTURER UNKNOWN) [Suspect]
     Active Substance: METHYLPREDNISOLONE
     Dosage: 0,5 GRAM
     Route: 042
     Dates: start: 2018, end: 2018

REACTIONS (3)
  - Myositis [Fatal]
  - Treatment failure [Fatal]
  - Condition aggravated [Fatal]
